FAERS Safety Report 13660111 (Version 2)
Quarter: 2017Q2

REPORT INFORMATION
  Report Type: Report from Study
  Country: US (occurrence: US)
  Receive Date: 20170616
  Receipt Date: 20170626
  Transmission Date: 20170830
  Serious: Yes (Hospitalization, Other)
  Sender: FDA-Public Use
  Company Number: US-MALLINCKRODT-T201702352

PATIENT
  Age: 58 Year
  Sex: Male

DRUGS (3)
  1. REPOSITORY CORTICOTROPIN INJECTION [Suspect]
     Active Substance: CORTICOTROPIN
     Dosage: UNK
     Route: 065
     Dates: start: 201703
  2. REPOSITORY CORTICOTROPIN INJECTION [Suspect]
     Active Substance: CORTICOTROPIN
     Indication: SARCOIDOSIS
     Dosage: 40 UNITS /0.5 ML, EVERY 3 DAYS/ EVERY 72 HOURS
     Route: 058
     Dates: start: 20170204, end: 20170519
  3. REPOSITORY CORTICOTROPIN INJECTION [Suspect]
     Active Substance: CORTICOTROPIN
     Dosage: 40 UNITS /0.5 ML, EVERY 3 DAYS/ EVERY 72 HOURS
     Route: 058
     Dates: start: 20170126, end: 20170228

REACTIONS (6)
  - Anxiety [Unknown]
  - Abdominal distension [Unknown]
  - Asthenia [Unknown]
  - Dyspnoea [Unknown]
  - Hand fracture [Not Recovered/Not Resolved]
  - Feeling abnormal [Unknown]

NARRATIVE: CASE EVENT DATE: 20170605
